FAERS Safety Report 10658265 (Version 2)
Quarter: 2015Q1

REPORT INFORMATION
  Report Type: Report from Study
  Country: DE (occurrence: DE)
  Receive Date: 20141217
  Receipt Date: 20150126
  Transmission Date: 20150720
  Serious: Yes (Death)
  Sender: FDA-Public Use
  Company Number: DE-ACTELION-A-US2014-109815

PATIENT
  Age: 83 Year
  Sex: Female

DRUGS (7)
  1. TOREM [Concomitant]
     Active Substance: TORSEMIDE
  2. OXYGEN. [Concomitant]
     Active Substance: OXYGEN
  3. PANTOZOL [Concomitant]
     Active Substance: PANTOPRAZOLE SODIUM
  4. MORPHIN [Concomitant]
     Active Substance: MORPHINE
  5. SPIRONOLACTONE. [Concomitant]
     Active Substance: SPIRONOLACTONE
  6. L-THYROX [Concomitant]
     Active Substance: LEVOTHYROXINE SODIUM
  7. VENTAVIS [Suspect]
     Active Substance: ILOPROST
     Indication: PULMONARY ARTERIAL HYPERTENSION
     Dosage: 2.5 MCG, 5 X/DAILY
     Route: 055
     Dates: start: 2014

REACTIONS (1)
  - Respiratory failure [Fatal]

NARRATIVE: CASE EVENT DATE: 20141206
